FAERS Safety Report 5373426-X (Version None)
Quarter: 2007Q2

REPORT INFORMATION
  Report Type: 
  Country: None (occurrence: None)
  Receive Date: 20070628
  Receipt Date: 20070619
  Transmission Date: 20071010
  Serious: Yes (Hospitalization)
  Sender: FDA-Public Use
  Company Number: HQWYE727621JUN07

PATIENT
  Sex: Male
  Weight: 69.01 kg

DRUGS (1)
  1. TORISEL [Suspect]
     Indication: METASTATIC RENAL CELL CARCINOMA
     Route: 042
     Dates: start: 20070417

REACTIONS (3)
  - EPIGLOTTITIS [None]
  - PHARYNGITIS [None]
  - STREPTOCOCCAL INFECTION [None]
